FAERS Safety Report 5821962-1 (Version None)
Quarter: 2008Q3

REPORT INFORMATION
  Report Type: 
  Country: None (occurrence: None)
  Receive Date: 20080724
  Receipt Date: 20080714
  Transmission Date: 20090109
  Serious: Yes (Hospitalization, Other)
  Sender: FDA-Public Use
  Company Number: US-ABBOTT-08P-163-0458473-00

PATIENT
  Sex: Female
  Weight: 86 kg

DRUGS (22)
  1. HUMIRA [Suspect]
     Indication: ANKYLOSING SPONDYLITIS
     Dosage: OFF FROM JAN 2008 TO MAY 2008
     Route: 050
     Dates: start: 20061001, end: 20080101
  2. HUMIRA [Suspect]
     Dates: start: 20080501, end: 20080501
  3. HUMIRA [Suspect]
     Dates: start: 20080601, end: 20080601
  4. METHOTREXATE SODIUM [Suspect]
     Indication: ANKYLOSING SPONDYLITIS
     Route: 048
     Dates: end: 20070604
  5. FOLIC ACID [Concomitant]
     Indication: VITAMIN SUPPLEMENTATION
     Route: 048
     Dates: start: 20060101
  6. ROSUVASTATIN CALCIUM [Concomitant]
     Indication: BLOOD CHOLESTEROL
     Route: 048
  7. ACETYLSALICYLIC ACID SRT [Concomitant]
     Indication: CARDIOVASCULAR EVENT PROPHYLAXIS
     Route: 048
  8. NADOLOL [Concomitant]
     Indication: ARRHYTHMIA
     Route: 048
  9. CELECOXIB [Concomitant]
     Indication: ANKYLOSING SPONDYLITIS
     Route: 048
  10. METHOCARBIN [Concomitant]
     Indication: HYPOTONIA
     Dosage: 1/2 750 MG AT NIGHT (UNIT DOSE)
     Route: 048
  11. METHOCARBIN [Concomitant]
     Indication: FIBROMYALGIA
  12. PREGABALIN [Concomitant]
     Indication: FIBROMYALGIA
     Dosage: 50 MG 1 OR 2 EVERYDAY
     Route: 048
  13. COLECALCIFEROL [Concomitant]
     Indication: BLOOD CALCIUM DECREASED
     Route: 048
  14. UBIDECARENONE [Concomitant]
     Indication: MYALGIA
     Route: 048
  15. LOVASA [Concomitant]
     Indication: MEDICAL DIET
     Dosage: 2-4 EVERYDAY
     Route: 048
  16. FLAX SEED OIL [Concomitant]
     Indication: LIPIDS
     Route: 048
  17. POTASSIUM CHLORIDE [Concomitant]
     Indication: BLOOD POTASSIUM DECREASED
     Route: 048
  18. HYDROCHLOROTHIAZIDE [Concomitant]
     Indication: POLYURIA
     Route: 048
  19. ZOLPIDEM TARTRATE [Concomitant]
     Indication: INSOMNIA
     Dosage: QUARTERED
  20. OS-CAL [Concomitant]
     Indication: MINERAL SUPPLEMENTATION
     Route: 048
     Dates: start: 20070201
  21. ALLIUM SATIVUM [Concomitant]
     Indication: MEDICAL DIET
     Route: 048
     Dates: start: 19980101
  22. MULTI-VITAMINS [Concomitant]
     Indication: VITAMIN SUPPLEMENTATION
     Route: 048
     Dates: start: 19980101

REACTIONS (14)
  - ARTHRALGIA [None]
  - BACK PAIN [None]
  - BLOODY DISCHARGE [None]
  - DISCOMFORT [None]
  - DRUG DOSE OMISSION [None]
  - DYSSTASIA [None]
  - FUNGAL INFECTION [None]
  - HYPOTENSION [None]
  - IMPAIRED HEALING [None]
  - INSOMNIA [None]
  - PELVIC PAIN [None]
  - PERIRECTAL ABSCESS [None]
  - PURULENT DISCHARGE [None]
  - SEPSIS [None]
